FAERS Safety Report 10436410 (Version 1)
Quarter: 2014Q3

REPORT INFORMATION
  Report Type: Spontaneous
  Country: US (occurrence: None)
  Receive Date: 20140905
  Receipt Date: 20140905
  Transmission Date: 20150326
  Serious: Yes (Hospitalization)
  Sender: FDA-Public Use
  Company Number: None

PATIENT
  Age: 1 Year
  Sex: Female
  Weight: 10.9 kg

DRUGS (6)
  1. DEXAMETHASONE. [Suspect]
     Active Substance: DEXAMETHASONE
     Dates: end: 20140809
  2. ONCASPAR [Suspect]
     Active Substance: PEGASPARGASE
     Dates: end: 20140731
  3. DAUNORUBICIN [Suspect]
     Active Substance: DAUNORUBICIN
     Dates: end: 20140804
  4. CYTARABINE. [Suspect]
     Active Substance: CYTARABINE
     Dates: end: 20140728
  5. METHOTREXATE [Suspect]
     Active Substance: METHOTREXATE
     Dates: end: 20140804
  6. VINCRISTINE SULFATE. [Suspect]
     Active Substance: VINCRISTINE SULFATE
     Dates: end: 20140804

REACTIONS (6)
  - Intestinal perforation [None]
  - Pseudomonas test positive [None]
  - Ileus [None]
  - Neutropenic colitis [None]
  - Blood culture positive [None]
  - Streptococcus test positive [None]

NARRATIVE: CASE EVENT DATE: 20140809
